FAERS Safety Report 8860582 (Version 1)
Quarter: 2012Q4

REPORT INFORMATION
  Report Type: 
  Country: US (occurrence: US)
  Receive Date: 20121025
  Receipt Date: 20121025
  Transmission Date: 20130627
  Serious: Yes (Other)
  Sender: FDA-Public Use
  Company Number: US-ELI_LILLY_AND_COMPANY-US201210005611

PATIENT
  Age: 55 Year
  Sex: Male

DRUGS (2)
  1. CIALIS [Suspect]
     Indication: ERECTILE DYSFUNCTION
     Dosage: 5 mg, UNK
  2. FLOMAX [Concomitant]

REACTIONS (2)
  - Renal failure [Unknown]
  - Hypotension [Unknown]
